FAERS Safety Report 11575247 (Version 4)
Quarter: 2015Q4

REPORT INFORMATION
  Report Type: Spontaneous
  Country: US (occurrence: US)
  Receive Date: 20150916
  Receipt Date: 20151110
  Transmission Date: 20160304
  Serious: No
  Sender: FDA-Public Use
  Company Number: US-ELI_LILLY_AND_COMPANY-US200911005092

PATIENT
  Age: 85 Year
  Sex: Female

DRUGS (15)
  1. FORTEO [Suspect]
     Active Substance: TERIPARATIDE
     Indication: OSTEOPOROSIS
     Dosage: 20 UG, QD
     Route: 058
     Dates: start: 20091117
  2. FORTEO [Suspect]
     Active Substance: TERIPARATIDE
     Dosage: 20 UG, QD
     Route: 058
     Dates: end: 20111105
  3. CALCIUM [Concomitant]
     Active Substance: CALCIUM
     Dosage: UNK, DAILY (1/D)
  4. FORTEO [Suspect]
     Active Substance: TERIPARATIDE
     Dosage: 20 UG, QD
     Route: 058
  5. FOSAMAX [Concomitant]
     Active Substance: ALENDRONATE SODIUM
     Dosage: UNK, WEEKLY (1/W)
  6. COLACE [Concomitant]
     Active Substance: DOCUSATE SODIUM
  7. FORTEO [Suspect]
     Active Substance: TERIPARATIDE
     Dosage: 20 UG, QD
     Route: 058
  8. FORTEO [Suspect]
     Active Substance: TERIPARATIDE
     Dosage: 20 UG, QD
     Route: 058
  9. ASA [Concomitant]
     Active Substance: ASPIRIN
     Dosage: 81 MG, UNK
  10. TYLENOL [Concomitant]
     Active Substance: ACETAMINOPHEN
     Indication: PAIN
  11. FORTEO [Suspect]
     Active Substance: TERIPARATIDE
     Dosage: 20 UG, QD
     Route: 058
  12. VITAMIN D3 [Concomitant]
     Active Substance: CHOLECALCIFEROL
     Dosage: UNK, DAILY (1/D)
  13. FORTEO [Suspect]
     Active Substance: TERIPARATIDE
     Dosage: 20 UG, QD
     Route: 058
  14. THYROID THERAPY [Concomitant]
     Active Substance: UNSPECIFIED INGREDIENT
     Dates: start: 200910
  15. METOPROLOL [Concomitant]
     Active Substance: METOPROLOL

REACTIONS (30)
  - Urinary tract infection [Unknown]
  - Pollakiuria [Not Recovered/Not Resolved]
  - Chromaturia [Unknown]
  - Malaise [Unknown]
  - Vision blurred [Not Recovered/Not Resolved]
  - Nervousness [Unknown]
  - Dizziness [Recovered/Resolved]
  - Confusional state [Recovered/Resolved]
  - Thinking abnormal [Unknown]
  - Urine abnormality [Unknown]
  - Eye disorder [Unknown]
  - Hair growth abnormal [Unknown]
  - Headache [Recovered/Resolved]
  - Drug dose omission [Unknown]
  - Dry skin [Unknown]
  - Back pain [Unknown]
  - Blood pressure fluctuation [Recovered/Resolved]
  - Cataract [Unknown]
  - Visual impairment [Unknown]
  - Gait disturbance [Unknown]
  - Nausea [Recovered/Resolved]
  - Muscle tightness [Recovered/Resolved]
  - Nausea [Unknown]
  - Burning sensation [Unknown]
  - Fatigue [Unknown]
  - Nail growth abnormal [Unknown]
  - Blood calcium increased [Recovered/Resolved]
  - Eye irritation [Unknown]
  - Eye pruritus [Recovering/Resolving]
  - Asthenia [Recovered/Resolved]

NARRATIVE: CASE EVENT DATE: 20091117
